FAERS Safety Report 19369896 (Version 1)
Quarter: 2021Q2

REPORT INFORMATION
  Report Type: Spontaneous
  Country: PT (occurrence: PT)
  Receive Date: 20210604
  Receipt Date: 20210604
  Transmission Date: 20210717
  Serious: Yes (Hospitalization, Other)
  Sender: FDA-Public Use
  Company Number: PT-AUROBINDO-AUR-APL-2021-023009

PATIENT
  Age: 48 Year
  Sex: Male

DRUGS (6)
  1. RASAGILINE. [Suspect]
     Active Substance: RASAGILINE
     Indication: PRODUCT USED FOR UNKNOWN INDICATION
     Dosage: 1 MILLIGRAM, ONCE A DAY
     Route: 065
  2. SERTRALINE [Suspect]
     Active Substance: SERTRALINE HYDROCHLORIDE
     Indication: PRODUCT USED FOR UNKNOWN INDICATION
     Dosage: 100 MILLIGRAM, ONCE A DAY
     Route: 065
  3. VENLAFAXINE [Suspect]
     Active Substance: VENLAFAXINE HYDROCHLORIDE
     Indication: PRODUCT USED FOR UNKNOWN INDICATION
     Dosage: 75 MILLIGRAM
     Route: 065
  4. MIRTAZAPINE. [Suspect]
     Active Substance: MIRTAZAPINE
     Indication: PRODUCT USED FOR UNKNOWN INDICATION
     Dosage: 15 MILLIGRAM
     Route: 065
  5. LEVODOPA [Suspect]
     Active Substance: LEVODOPA
     Indication: PRODUCT USED FOR UNKNOWN INDICATION
     Dosage: 150 MILLIGRAM, ONCE A DAY
     Route: 065
  6. PRAMIPEXOLE. [Suspect]
     Active Substance: PRAMIPEXOLE
     Indication: PRODUCT USED FOR UNKNOWN INDICATION
     Dosage: 1.02 MILLIGRAM
     Route: 065

REACTIONS (2)
  - Serotonin syndrome [Recovered/Resolved]
  - Duplicate therapy error [Unknown]
